FAERS Safety Report 25338310 (Version 1)
Quarter: 2025Q2

REPORT INFORMATION
  Report Type: Spontaneous
  Country: US (occurrence: US)
  Receive Date: 20250520
  Receipt Date: 20250520
  Transmission Date: 20250716
  Serious: No
  Sender: SANOFI AVENTIS
  Company Number: US-SA-2025SA142947

PATIENT
  Age: 64 Year
  Sex: Female

DRUGS (1)
  1. KEVZARA [Suspect]
     Active Substance: SARILUMAB
     Indication: Polymyalgia rheumatica
     Dosage: 200 MG, QOW
     Route: 058
     Dates: start: 202504

REACTIONS (3)
  - Vomiting [Unknown]
  - Nausea [Unknown]
  - Diarrhoea [Unknown]

NARRATIVE: CASE EVENT DATE: 20250101
